FAERS Safety Report 8619030-9 (Version None)
Quarter: 2012Q3

REPORT INFORMATION
  Report Type: 
  Country: None (occurrence: None)
  Receive Date: 20120824
  Receipt Date: 20110510
  Transmission Date: 20120928
  Serious: Yes (Death, Hospitalization)
  Sender: FDA-Public Use
  Company Number: US-BAYER-201019555NA

PATIENT
  Age: 33 Year
  Sex: Female
  Weight: 120 kg

DRUGS (28)
  1. DROSPIRENONE AND ETHINYL ESTRADIOL [Suspect]
     Indication: PREMENSTRUAL SYNDROME
  2. SEROQUEL [Concomitant]
     Dosage: 1000 MG (DAILY DOSE), QD, ORAL
     Route: 048
  3. PROTONIX [Concomitant]
     Dosage: 40 MG (DAILY DOSE), QD, ORAL
     Route: 048
  4. JANUVIA [Concomitant]
     Dosage: 2 MG (DAILY DOSE), QD, ORAL
     Route: 048
  5. DARVOCET [Concomitant]
     Indication: PAIN
     Dosage: 1-2 TABLETS Q4H
  6. ALBUTEROL [Concomitant]
  7. PROTONIX [Concomitant]
     Dosage: UNK
     Route: 042
  8. PROZAC [Concomitant]
     Dosage: 20 MG (DAILY DOSE), QD, ORAL
     Route: 048
  9. TESSALON [Concomitant]
  10. TUSSIONEX [Concomitant]
  11. NAPROXEN [Concomitant]
     Indication: PAIN IN EXTREMITY
     Dosage: UNK UNK, BID
     Dates: start: 20080616
  12. DIOVAN [Concomitant]
     Dosage: 4 MG (DAILY DOSE), QD, ORAL
     Route: 048
  13. ZITHROMAX [Concomitant]
  14. ZOFRAN [Concomitant]
  15. HALOPERIDOL LACTATE [Concomitant]
  16. ROCEPHIN [Concomitant]
     Dates: end: 20080624
  17. NEURONTIN [Concomitant]
     Dosage: 600 MG, TID
     Route: 048
     Dates: start: 20080616
  18. CIPROFLOXACIN HCL [Concomitant]
     Dosage: 250 MG (DAILY DOSE), BID,
  19. PHENERGAN HCL [Concomitant]
  20. DILAUDID [Concomitant]
  21. CEFDINIR [Concomitant]
     Dosage: 300 MG, BID
     Route: 048
     Dates: start: 20080508
  22. YASMIN [Suspect]
     Indication: PREMENSTRUAL SYNDROME
     Dosage: UNK
     Dates: start: 20080410, end: 20080601
  23. YAZ [Suspect]
     Indication: PREMENSTRUAL SYNDROME
  24. IBUPROFEN [Concomitant]
  25. TRAZODONE HYDROCHLORIDE [Concomitant]
     Dosage: QHS
     Route: 048
  26. SODIUM CHLORIDE [Concomitant]
  27. IBUPROFEN [Concomitant]
  28. TUSSIONEX [HYDROCODONE,PHENYLTOLOXAMINE] [Concomitant]

REACTIONS (4)
  - RESPIRATORY ARREST [None]
  - PULMONARY EMBOLISM [None]
  - PAIN IN EXTREMITY [None]
  - DEEP VEIN THROMBOSIS [None]
